FAERS Safety Report 5727651-6 (Version None)
Quarter: 2008Q2

REPORT INFORMATION
  Report Type: 
  Country: None (occurrence: None)
  Receive Date: 20080505
  Receipt Date: 20080430
  Transmission Date: 20081010
  Serious: Yes (Other)
  Sender: FDA-Public Use
  Company Number: A0726170A

PATIENT
  Sex: Female

DRUGS (4)
  1. AVANDIA [Suspect]
     Indication: DRUG USE FOR UNKNOWN INDICATION
     Route: 048
  2. GLUCOTROL [Suspect]
  3. METFORMIN HCL [Suspect]
  4. ACTOS [Suspect]

REACTIONS (4)
  - ARTHRALGIA [None]
  - CHEST PAIN [None]
  - NAUSEA [None]
  - NEPHROLITHIASIS [None]
